FAERS Safety Report 13033917 (Version 1)
Quarter: 2016Q4

REPORT INFORMATION
  Report Type: Spontaneous
  Country: US (occurrence: US)
  Receive Date: 20161215
  Receipt Date: 20161215
  Transmission Date: 20170207
  Serious: Yes (Death)
  Sender: FDA-Public Use
  Company Number: None

PATIENT
  Age: 72 Year
  Sex: Female

DRUGS (1)
  1. ALECENSA [Suspect]
     Active Substance: ALECTINIB HYDROCHLORIDE
     Indication: BRONCHIAL CARCINOMA
     Dosage: ALECENSA - 150MG 0 PO - 4 CAPS BID
     Route: 048
     Dates: start: 20160718, end: 20161108

REACTIONS (1)
  - Death [None]

NARRATIVE: CASE EVENT DATE: 20161212
